FAERS Safety Report 5690179-6 (Version None)
Quarter: 2008Q2

REPORT INFORMATION
  Report Type: 
  Country: None (occurrence: None)
  Receive Date: 20080401
  Receipt Date: 20080324
  Transmission Date: 20081010
  Serious: Yes (Hospitalization)
  Sender: FDA-Public Use
  Company Number: JP-JNJFOC-20080202016

PATIENT
  Sex: Male
  Weight: 70 kg

DRUGS (30)
  1. REMICADE [Suspect]
     Route: 042
  2. REMICADE [Suspect]
     Route: 042
  3. REMICADE [Suspect]
     Route: 042
  4. REMICADE [Suspect]
     Route: 042
  5. REMICADE [Suspect]
     Route: 042
  6. REMICADE [Suspect]
     Route: 042
  7. REMICADE [Suspect]
     Route: 042
  8. REMICADE [Suspect]
     Route: 042
  9. REMICADE [Suspect]
     Route: 042
  10. REMICADE [Suspect]
     Route: 042
  11. REMICADE [Suspect]
     Route: 042
  12. REMICADE [Suspect]
     Indication: RHEUMATOID ARTHRITIS
     Route: 042
  13. PREDNISOLONE [Concomitant]
     Route: 048
  14. PREDNISOLONE [Concomitant]
     Route: 048
  15. PREDNISOLONE [Concomitant]
     Route: 048
  16. PREDNISOLONE [Concomitant]
     Route: 048
  17. PREDNISOLONE [Concomitant]
     Route: 048
  18. PREDNISOLONE [Concomitant]
     Route: 048
  19. PREDNISOLONE [Concomitant]
     Route: 048
  20. PREDNISOLONE [Concomitant]
     Route: 048
  21. PREDNISOLONE [Concomitant]
     Route: 048
  22. PREDNISOLONE [Concomitant]
     Route: 048
  23. PREDNISOLONE [Concomitant]
     Route: 048
  24. PREDNISOLONE [Concomitant]
     Dosage: TAPERING FROM 30 MG
     Route: 048
  25. INTEBAN SP [Concomitant]
     Indication: RHEUMATOID ARTHRITIS
     Route: 048
  26. ISCOTIN [Concomitant]
     Indication: ANTIBIOTIC PROPHYLAXIS
     Route: 048
  27. ANTIHISTAMINE [Concomitant]
     Indication: PROPHYLAXIS
  28. ASPIRIN [Concomitant]
     Indication: RHEUMATOID ARTHRITIS
     Route: 048
  29. ADRENAL HORMONE [Concomitant]
     Indication: RHEUMATOID ARTHRITIS
  30. MUCOSTA [Concomitant]
     Route: 048

REACTIONS (1)
  - GASTRIC CANCER [None]
